FAERS Safety Report 17345386 (Version 1)
Quarter: 2020Q1

REPORT INFORMATION
  Report Type: Spontaneous
  Country: ES (occurrence: ES)
  Receive Date: 20200129
  Receipt Date: 20200129
  Transmission Date: 20200409
  Serious: Yes (Congenital Anomaly, Other)
  Sender: FDA-Public Use
  Company Number: ES-MALLINCKRODT-T202000361

PATIENT
  Sex: Male

DRUGS (4)
  1. OFIRMEV [Suspect]
     Active Substance: ACETAMINOPHEN
     Indication: PRODUCT USED FOR UNKNOWN INDICATION
     Dosage: UNK, Q6H
     Route: 064
  2. OFIRMEV [Suspect]
     Active Substance: ACETAMINOPHEN
     Dosage: 1 GRAM, TID
     Route: 064
  3. BUSCAPINA COMPOSITUM [Concomitant]
     Active Substance: BUTYLSCOPOLAMINE BROMIDE\METAMIZOLE SODIUM
     Indication: PRODUCT USED FOR UNKNOWN INDICATION
     Dosage: UNK
     Route: 065
  4. AMOXICILLIN+CLAVULANIC ACID [Concomitant]
     Active Substance: AMOXICILLIN\CLAVULANIC ACID
     Indication: PRODUCT USED FOR UNKNOWN INDICATION
     Dosage: UNK
     Route: 065

REACTIONS (8)
  - Foetal exposure during pregnancy [Unknown]
  - Congenital tricuspid valve incompetence [Recovered/Resolved]
  - Pericardial effusion [Recovered/Resolved]
  - Ductus arteriosus stenosis foetal [Recovered/Resolved]
  - Pulmonary valve incompetence [Recovered/Resolved]
  - Right ventricular hypertrophy [Recovered/Resolved]
  - Premature baby [Unknown]
  - Right atrial enlargement [Unknown]
